FAERS Safety Report 17058115 (Version 4)
Quarter: 2020Q1

REPORT INFORMATION
  Report Type: Spontaneous
  Country: US (occurrence: US)
  Receive Date: 20191121
  Receipt Date: 20200102
  Transmission Date: 20200409
  Serious: Yes (Other)
  Sender: FDA-Public Use
  Company Number: US-PFIZER INC-2019498817

PATIENT
  Age: 61 Year
  Sex: Female
  Weight: 86.18 kg

DRUGS (4)
  1. ZYVOX [Suspect]
     Active Substance: LINEZOLID
     Dosage: 600 MG, 2X/DAY (FOR 60 DAYS)
     Route: 048
  2. ZYVOX [Suspect]
     Active Substance: LINEZOLID
     Indication: WOUND INFECTION STAPHYLOCOCCAL
     Dosage: 600 MG, 2X/DAY (30 DAY SUPPLY)
     Route: 048
     Dates: start: 20191112
  3. GABAPENTIN. [Concomitant]
     Active Substance: GABAPENTIN
     Dosage: UNK
  4. LISINOPRIL. [Concomitant]
     Active Substance: LISINOPRIL
     Dosage: UNK

REACTIONS (4)
  - Off label use [Unknown]
  - Disease recurrence [Unknown]
  - Product prescribing issue [Unknown]
  - Panniculitis [Unknown]
